FAERS Safety Report 7460460-9 (Version None)
Quarter: 2011Q2

REPORT INFORMATION
  Report Type: 
  Country: None (occurrence: None)
  Receive Date: 20110505
  Receipt Date: 20110502
  Transmission Date: 20111010
  Serious: Yes (Life-Threatening, Hospitalization)
  Sender: FDA-Public Use
  Company Number: D0070811A

PATIENT
  Sex: Female

DRUGS (7)
  1. PREDNISOLONE [Concomitant]
     Indication: IDIOPATHIC THROMBOCYTOPENIC PURPURA
     Dosage: 5MG PER DAY
     Route: 065
     Dates: start: 20110121, end: 20110127
  2. MCP [Concomitant]
     Route: 065
  3. REVOLADE [Suspect]
     Indication: IDIOPATHIC THROMBOCYTOPENIC PURPURA
     Dosage: 50MG PER DAY
     Route: 048
     Dates: start: 20101119, end: 20110128
  4. DECORTIN [Concomitant]
     Route: 065
  5. EFFORTIL [Concomitant]
     Route: 065
  6. CELEBREX [Concomitant]
     Route: 065
  7. RANIBETA [Concomitant]
     Route: 065

REACTIONS (2)
  - PULMONARY EMBOLISM [None]
  - DEEP VEIN THROMBOSIS [None]
